FAERS Safety Report 9392347 (Version 1)
Quarter: 2013Q3

REPORT INFORMATION
  Report Type: Spontaneous
  Country: US (occurrence: None)
  Receive Date: 20130708
  Receipt Date: 20130708
  Transmission Date: 20140515
  Serious: Yes (Other)
  Sender: FDA-Public Use
  Company Number: None

PATIENT
  Age: 73 Year
  Sex: 0
  Weight: 71.67 kg

DRUGS (2)
  1. TIKOSYN [Suspect]
     Indication: ATRIAL FIBRILLATION
     Route: 048
  2. ELIQUIS [Suspect]
     Indication: BLOOD VISCOSITY INCREASED
     Route: 048

REACTIONS (7)
  - Vomiting [None]
  - Muscle twitching [None]
  - Muscle twitching [None]
  - Back pain [None]
  - Pain in extremity [None]
  - Pain in extremity [None]
  - Muscle spasms [None]
